FAERS Safety Report 18618800 (Version 1)
Quarter: 2020Q4

REPORT INFORMATION
  Report Type: Spontaneous
  Country: US (occurrence: US)
  Receive Date: 20201215
  Receipt Date: 20201215
  Transmission Date: 20210114
  Serious: Yes (Hospitalization)
  Sender: FDA-Public Use
  Company Number: None

PATIENT
  Age: 65 Year
  Sex: Male

DRUGS (1)
  1. DOFETILIDE. [Suspect]
     Active Substance: DOFETILIDE
     Indication: NEOPLASM MALIGNANT
     Route: 048
     Dates: start: 20180126

REACTIONS (1)
  - Retinal detachment [None]

NARRATIVE: CASE EVENT DATE: 20200923
